FAERS Safety Report 4640508-7 (Version None)
Quarter: 2005Q2

REPORT INFORMATION
  Report Type: 
  Country: None (occurrence: None)
  Receive Date: 20050419
  Receipt Date: 20050405
  Transmission Date: 20051028
  Serious: Yes (Hospitalization, Other)
  Sender: FDA-Public Use
  Company Number: 2005055516

PATIENT
  Age: 68 Year
  Sex: Female
  Weight: 122.4712 kg

DRUGS (10)
  1. GLUCOTROL XL [Suspect]
     Indication: DIABETES MELLITUS
     Dosage: ORAL
     Route: 048
     Dates: end: 20041201
  2. ZOLOFT [Suspect]
     Indication: DEPRESSION
     Dosage: ORAL
     Route: 048
  3. GABAPENTIN [Suspect]
     Indication: NEUROPATHY
     Dosage: 900 MG (300 MG, 3 IN 1 D), ORAL
     Route: 048
     Dates: start: 20050331
  4. ATORVASTATIN CALCIUM [Concomitant]
  5. GUAIFENESIN (GUAIFENESIN) [Concomitant]
  6. DYAZIDE [Concomitant]
  7. ALBUTEROL SULFATE HFA [Concomitant]
  8. METOPROLOL SUCCINATE [Concomitant]
  9. VALSARTAN [Concomitant]
  10. HUMAN MIXTARD (INSULIN HUMAN, INSULIN HUMAN INJECTION, ISOPHANE) [Concomitant]

REACTIONS (20)
  - BLOOD PRESSURE INADEQUATELY CONTROLLED [None]
  - BODY HEIGHT DECREASED [None]
  - BURNING SENSATION [None]
  - CARDIAC FAILURE [None]
  - CONDITION AGGRAVATED [None]
  - CORONARY ARTERY OCCLUSION [None]
  - DEPRESSION [None]
  - DIABETES MELLITUS INADEQUATE CONTROL [None]
  - DISEASE RECURRENCE [None]
  - DRUG INEFFECTIVE [None]
  - DYSPNOEA [None]
  - ECONOMIC PROBLEM [None]
  - MULTIPLE FRACTURES [None]
  - NEUROPATHY [None]
  - OVERWEIGHT [None]
  - POST PROCEDURAL COMPLICATION [None]
  - SKIN DISCOLOURATION [None]
  - STRESS [None]
  - STRESS FRACTURE [None]
  - TREATMENT NONCOMPLIANCE [None]
